FAERS Safety Report 7517409-X (Version None)
Quarter: 2011Q2

REPORT INFORMATION
  Report Type: 
  Country: None (occurrence: None)
  Receive Date: 20110601
  Receipt Date: 20110523
  Transmission Date: 20111010
  Serious: Yes (Other)
  Sender: FDA-Public Use
  Company Number: JP-JNJFOC-20110105099

PATIENT
  Sex: Male

DRUGS (3)
  1. RISPERDAL [Suspect]
     Indication: SLEEP DISORDER THERAPY
     Route: 048
  2. DOGMATYL [Concomitant]
     Route: 048
  3. SEPAZON [Concomitant]
     Route: 048

REACTIONS (6)
  - GLYCOSYLATED HAEMOGLOBIN INCREASED [None]
  - OFF LABEL USE [None]
  - DECREASED APPETITE [None]
  - MICTURITION FREQUENCY DECREASED [None]
  - DRUG INEFFECTIVE FOR UNAPPROVED INDICATION [None]
  - MALAISE [None]
